FAERS Safety Report 6037301-X (Version None)
Quarter: 2009Q1

REPORT INFORMATION
  Report Type: 
  Country: None (occurrence: None)
  Receive Date: 20090114
  Receipt Date: 20090105
  Transmission Date: 20090719
  Serious: Yes (Other)
  Sender: FDA-Public Use
  Company Number: US-SANOFI-SYNTHELABO-A03200900063

PATIENT
  Sex: Female
  Weight: 54.4 kg

DRUGS (9)
  1. MORPHINE SULFATE [Concomitant]
     Indication: CANCER PAIN
     Dosage: UNK
     Route: 065
  2. PREDNISONE TAB [Suspect]
     Indication: DRUG USE FOR UNKNOWN INDICATION
     Dosage: UNK
     Route: 048
  3. PREDNISONE TAB [Suspect]
     Dosage: UNK
     Route: 048
  4. AMLODIPINE BESYLATE [Suspect]
     Indication: DRUG USE FOR UNKNOWN INDICATION
     Dosage: UNK
     Route: 048
     Dates: end: 20080828
  5. METHOTREXATE [Suspect]
     Indication: DRUG USE FOR UNKNOWN INDICATION
     Dosage: UNK
     Route: 048
     Dates: end: 20080125
  6. METHOTREXATE [Suspect]
     Dosage: UNK
     Route: 048
     Dates: start: 20080401
  7. HUMIRA [Suspect]
     Indication: DRUG USE FOR UNKNOWN INDICATION
     Route: 058
     Dates: start: 20060101, end: 20080125
  8. HUMIRA [Suspect]
     Route: 058
     Dates: start: 20080201
  9. PLAQUENIL [Suspect]
     Indication: DRUG USE FOR UNKNOWN INDICATION
     Dosage: UNK
     Route: 048
     Dates: end: 20080101

REACTIONS (14)
  - ABDOMINAL PAIN [None]
  - ANGIOEDEMA [None]
  - ANXIETY [None]
  - CARDIAC ARREST [None]
  - IMPAIRED HEALING [None]
  - LYMPHADENOPATHY [None]
  - MOUTH ULCERATION [None]
  - PNEUMONIA [None]
  - RESPIRATORY ARREST [None]
  - STAPHYLOCOCCAL INFECTION [None]
  - VAGINAL CANCER [None]
  - VAGINAL ULCERATION [None]
  - VULVAL CANCER [None]
  - WHITE BLOOD CELL COUNT INCREASED [None]
